FAERS Safety Report 4919424-9 (Version None)
Quarter: 2006Q1

REPORT INFORMATION
  Report Type: 
  Country: None (occurrence: None)
  Receive Date: 20060113
  Receipt Date: 20051029
  Transmission Date: 20060701
  Serious: No
  Sender: FDA-Public Use
  Company Number: 2005SP003822

PATIENT
  Sex: Female

DRUGS (6)
  1. LUNESTA [Suspect]
     Indication: INSOMNIA
     Dosage: 3MG;HS;ORAL, 2MG;HS;ORAL, 2MG;1X;ORAL
     Route: 048
     Dates: start: 20050101, end: 20050101
  2. LUNESTA [Suspect]
     Indication: INSOMNIA
     Dosage: 3MG;HS;ORAL, 2MG;HS;ORAL, 2MG;1X;ORAL
     Route: 048
     Dates: start: 20051029, end: 20051029
  3. LUNESTA [Suspect]
     Indication: INSOMNIA
     Dosage: 3MG;HS;ORAL, 2MG;HS;ORAL, 2MG;1X;ORAL
     Route: 048
     Dates: start: 20050101
  4. CALCIUM GLUCONATE [Concomitant]
  5. ASPIRIN [Concomitant]
  6. MULTIVITAMIN [Concomitant]

REACTIONS (3)
  - DRUG INEFFECTIVE [None]
  - INSOMNIA [None]
  - SLEEP TALKING [None]
